FAERS Safety Report 5392371-7 (Version None)
Quarter: 2007Q3

REPORT INFORMATION
  Report Type: 
  Country: None (occurrence: None)
  Receive Date: 20070720
  Receipt Date: 20070713
  Transmission Date: 20080115
  Serious: Yes (Disabling)
  Sender: FDA-Public Use
  Company Number: A0663987A

PATIENT
  Age: 49 Year
  Sex: Male

DRUGS (4)
  1. IMITREX [Suspect]
     Indication: MIGRAINE
     Dosage: 100MG AS REQUIRED
     Route: 048
  2. ZOCOR [Concomitant]
  3. MAGNESIUM TABLET [Concomitant]
  4. PETADOLEX [Concomitant]

REACTIONS (5)
  - AGITATION [None]
  - IRRITABILITY [None]
  - NAUSEA [None]
  - PANIC REACTION [None]
  - YAWNING [None]
